FAERS Safety Report 7569568-0 (Version None)
Quarter: 2011Q2

REPORT INFORMATION
  Report Type: 
  Country: None (occurrence: None)
  Receive Date: 20110622
  Receipt Date: 20110622
  Transmission Date: 20111010
  Serious: No
  Sender: FDA-Public Use
  Company Number: None

PATIENT
  Age: 32 Year
  Sex: Female
  Weight: 69.8539 kg

DRUGS (1)
  1. ALLER-TEC 10MG KIRKLAND SIGNATURE [Suspect]
     Indication: MULTIPLE ALLERGIES
     Dosage: 1 PILL PER DAY PO
     Route: 048
     Dates: start: 20070101, end: 20110618

REACTIONS (2)
  - INSOMNIA [None]
  - PRURITUS GENERALISED [None]
